FAERS Safety Report 5034820-X (Version None)
Quarter: 2006Q2

REPORT INFORMATION
  Report Type: 
  Country: None (occurrence: None)
  Receive Date: 20060509
  Receipt Date: 20060202
  Transmission Date: 20061013
  Serious: Yes (Life-Threatening)
  Sender: FDA-Public Use
  Company Number: WAES 0602USA00573

PATIENT
  Age: 70 Year
  Sex: Female

DRUGS (2)
  1. FOSAMAX PLUS D [Suspect]
     Dosage: PO
     Route: 048
  2. FOSAMAX [Concomitant]

REACTIONS (1)
  - ABDOMINAL PAIN [None]
